FAERS Safety Report 16336867 (Version 1)
Quarter: 2019Q2

REPORT INFORMATION
  Report Type: Spontaneous
  Country: US (occurrence: US)
  Receive Date: 20190520
  Receipt Date: 20190520
  Transmission Date: 20190711
  Serious: Yes (Hospitalization)
  Sender: FDA-Public Use
  Company Number: None

PATIENT
  Age: 27 Year
  Sex: Female
  Weight: 45.5 kg

DRUGS (3)
  1. AIMOVIG [Suspect]
     Active Substance: ERENUMAB-AOOE
     Indication: MIGRAINE
     Dosage: ?          OTHER FREQUENCY:ONCE;?
     Route: 058
     Dates: start: 20190407, end: 20190407
  2. GABAPENTIN 1000 MG TID [Concomitant]
     Dates: start: 20170101
  3. AMITRIPTYLINE 100 MG DAILY [Concomitant]
     Dates: start: 20170101

REACTIONS (3)
  - Intestinal obstruction [None]
  - Corneal abrasion [None]
  - Pneumonia aspiration [None]

NARRATIVE: CASE EVENT DATE: 20190421
